FAERS Safety Report 8156207-3 (Version None)
Quarter: 2012Q1

REPORT INFORMATION
  Report Type: 
  Country: None (occurrence: None)
  Receive Date: 20120222
  Receipt Date: 20120206
  Transmission Date: 20120608
  Serious: Yes (Hospitalization)
  Sender: FDA-Public Use
  Company Number: DE-MILLENNIUM PHARMACEUTICALS, INC.-2011-02429

PATIENT

DRUGS (5)
  1. VELCADE [Suspect]
     Indication: MULTIPLE MYELOMA
     Dosage: 1.3 MG/M2, CYCLIC
     Route: 042
     Dates: start: 20110517, end: 20110528
  2. ACYCLOVIR [Concomitant]
     Indication: PROPHYLAXIS
     Dosage: 400 MG, BID
     Dates: start: 20110517, end: 20110601
  3. ADRIAMYCIN PFS [Concomitant]
     Indication: MULTIPLE MYELOMA
     Dosage: 9 MG/M2, UNK
     Route: 042
     Dates: start: 20110517, end: 20110520
  4. DEXAMETHASONE [Concomitant]
     Indication: MULTIPLE MYELOMA
     Dosage: 20 MG, UNK
     Dates: start: 20110517, end: 20110604
  5. CO-TRIMAZOLE [Concomitant]
     Indication: PROPHYLAXIS
     Dosage: 960 MG, BID
     Dates: start: 20110517, end: 20110601

REACTIONS (2)
  - PSEUDOMEMBRANOUS COLITIS [None]
  - VASCULAR STENOSIS [None]
